FAERS Safety Report 11427125 (Version 1)
Quarter: 2015Q3

REPORT INFORMATION
  Report Type: Spontaneous
  Country: US (occurrence: None)
  Receive Date: 20150827
  Receipt Date: 20150827
  Transmission Date: 20151125
  Serious: Yes (Death)
  Sender: FDA-Public Use
  Company Number: None

PATIENT
  Age: 64 Year
  Sex: Female
  Weight: 121 kg

DRUGS (13)
  1. IPRATROPIUM-ALBUTEROL [Concomitant]
     Active Substance: ALBUTEROL\IPRATROPIUM
  2. SODIUM BICARBONATE. [Concomitant]
     Active Substance: SODIUM BICARBONATE
  3. INSULIN DETEMIR [Concomitant]
     Active Substance: INSULIN DETEMIR
  4. BUDESONIDE. [Concomitant]
     Active Substance: BUDESONIDE
  5. HYDROMORPHONE [Concomitant]
     Active Substance: HYDROMORPHONE
  6. ENOXAPARIN 120MG/0.8ML SANDOZ [Suspect]
     Active Substance: ENOXAPARIN
     Indication: ATRIAL FIBRILLATION
     Route: 058
     Dates: start: 20150305, end: 20150320
  7. DIGOXIN. [Concomitant]
     Active Substance: DIGOXIN
  8. METHYLPREDNISOLONE. [Concomitant]
     Active Substance: METHYLPREDNISOLONE
  9. INSULIN LISPRO SLIDING SCALE [Concomitant]
  10. FAMOTIDINE. [Concomitant]
     Active Substance: FAMOTIDINE
  11. FLECAINIDE [Concomitant]
     Active Substance: FLECAINIDE
  12. DILTIAZEM HYDROCHLORIDE EXTENDED RELEASE [Concomitant]
     Active Substance: DILTIAZEM HYDROCHLORIDE
  13. METOPROLOL TARTRATE. [Concomitant]
     Active Substance: METOPROLOL TARTRATE

REACTIONS (13)
  - Faeces discoloured [None]
  - Leukocytosis [None]
  - Hypotension [None]
  - Legionella test positive [None]
  - Dyspnoea [None]
  - Pulmonary oedema [None]
  - Culture urine positive [None]
  - Respiratory failure [None]
  - Atrial fibrillation [None]
  - Bradycardia [None]
  - Shock [None]
  - Haemoglobin decreased [None]
  - Retroperitoneal haemorrhage [None]

NARRATIVE: CASE EVENT DATE: 20150321
